FAERS Safety Report 7233616-8 (Version None)
Quarter: 2011Q1

REPORT INFORMATION
  Report Type: 
  Country: None (occurrence: None)
  Receive Date: 20110113
  Receipt Date: 20110113
  Transmission Date: 20110831
  Serious: Yes (Hospitalization)
  Sender: FDA-Public Use
  Company Number: None

PATIENT
  Sex: Male
  Weight: 97 kg

DRUGS (5)
  1. METHOTREXATE [Suspect]
     Dosage: 15 MG
  2. VINCRISTINE SULFATE [Suspect]
     Dosage: 6 MG
  3. CYTARABINE [Suspect]
     Dosage: 70 MG
  4. DAUNORUBICIN HCL [Suspect]
     Dosage: 180 MG
  5. PEG-L- ASPARAGINASE (K-H) [Suspect]
     Dosage: 6000 MG

REACTIONS (5)
  - DYSPEPSIA [None]
  - HEPATIC STEATOSIS [None]
  - JAUNDICE [None]
  - HEPATOTOXICITY [None]
  - NO THERAPEUTIC RESPONSE [None]
